FAERS Safety Report 21314509 (Version 1)
Quarter: 2022Q3

REPORT INFORMATION
  Report Type: Spontaneous
  Country: US (occurrence: US)
  Receive Date: 20220909
  Receipt Date: 20220909
  Transmission Date: 20221027
  Serious: No
  Sender: FDA-Public Use
  Company Number: US-PFIZER INC-PV202200059613

PATIENT

DRUGS (1)
  1. PREMARIN [Suspect]
     Active Substance: ESTROGENS, CONJUGATED
     Dosage: 0.625 MG
     Dates: start: 1989

REACTIONS (6)
  - Emotional disorder [Unknown]
  - Depressed mood [Unknown]
  - Night sweats [Unknown]
  - Insomnia [Unknown]
  - Feeling abnormal [Unknown]
  - COVID-19 [Unknown]
